FAERS Safety Report 10180362 (Version 1)
Quarter: 2014Q2

REPORT INFORMATION
  Report Type: Spontaneous
  Country: US (occurrence: US)
  Receive Date: 20140519
  Receipt Date: 20140519
  Transmission Date: 20141212
  Serious: No
  Sender: FDA-Public Use
  Company Number: US-AMGEN INC.-USASP2013071716

PATIENT
  Age: 78 Year
  Sex: Female

DRUGS (8)
  1. PROLIA [Suspect]
     Indication: OSTEOPOROSIS POSTMENOPAUSAL
     Dosage: UNK
     Route: 065
  2. TIMOPTIC [Concomitant]
     Indication: GLAUCOMA
  3. LATANOPROST [Concomitant]
     Indication: GLAUCOMA
  4. PRAVASTATIN                        /00880402/ [Concomitant]
     Indication: BLOOD CHOLESTEROL
  5. MULTIVITAMIN                       /00097801/ [Concomitant]
  6. CALTRATE                           /00944201/ [Concomitant]
  7. SYNVISC [Concomitant]
  8. SALICYLATES NOS [Concomitant]

REACTIONS (3)
  - Arthropathy [Unknown]
  - Pain [Unknown]
  - Abdominal pain upper [Unknown]
